FAERS Safety Report 26055132 (Version 1)
Quarter: 2025Q4

REPORT INFORMATION
  Report Type: Report from Study
  Country: US (occurrence: US)
  Receive Date: 20251117
  Receipt Date: 20251117
  Transmission Date: 20260118
  Serious: Yes (Hospitalization, Other)
  Sender: MALLINCKRODT
  Company Number: US-MALLINCKRODT-MNK202507056

PATIENT
  Sex: Female

DRUGS (2)
  1. CORTICOTROPIN [Suspect]
     Active Substance: CORTICOTROPIN
     Indication: Systemic lupus erythematosus
     Dosage: UNKNOWN
  2. ELIQUIS [Suspect]
     Active Substance: APIXABAN
     Indication: Thrombosis
     Dosage: UNKNOWN

REACTIONS (10)
  - Post procedural haemorrhage [Unknown]
  - Swelling [Unknown]
  - Tachycardia [Unknown]
  - Dyspnoea [Unknown]
  - Chest pain [Unknown]
  - Contusion [Unknown]
  - Laryngeal dyskinesia [Unknown]
  - Condition aggravated [Unknown]
  - Decreased appetite [Unknown]
  - Insomnia [Recovered/Resolved]

NARRATIVE: CASE EVENT DATE: 20250101
